FAERS Safety Report 4829526-3 (Version None)
Quarter: 2005Q4

REPORT INFORMATION
  Report Type: 
  Country: None (occurrence: None)
  Receive Date: 20051116
  Receipt Date: 20051108
  Transmission Date: 20060501
  Serious: Yes (Other)
  Sender: FDA-Public Use
  Company Number: AU-SANOFI-SYNTHELABO-A01200507787

PATIENT
  Sex: Female

DRUGS (1)
  1. SKELID [Suspect]
     Indication: OSTEITIS DEFORMANS
     Route: 065

REACTIONS (1)
  - OSTEOMA [None]
